FAERS Safety Report 7350991-4 (Version None)
Quarter: 2011Q1

REPORT INFORMATION
  Report Type: 
  Country: None (occurrence: None)
  Receive Date: 20110314
  Receipt Date: 20110309
  Transmission Date: 20110831
  Serious: Yes (Other)
  Sender: FDA-Public Use
  Company Number: IL-PFIZER INC-2011026982

PATIENT
  Age: 29 Year
  Sex: Male

DRUGS (3)
  1. GEODON [Suspect]
     Dosage: 80 MG, 1X/DAY
     Route: 048
  2. GEODON [Suspect]
     Dosage: 60 MG, 2X/DAY
     Route: 048
  3. GEODON [Suspect]
     Indication: SCHIZOPHRENIA
     Dosage: 60 MG, 1X/DAY
     Route: 048

REACTIONS (4)
  - EYE MOVEMENT DISORDER [None]
  - FEAR [None]
  - EXTRAPYRAMIDAL DISORDER [None]
  - DYSKINESIA [None]
